FAERS Safety Report 9667233 (Version 1)
Quarter: 2013Q4

REPORT INFORMATION
  Report Type: Spontaneous
  Country: US (occurrence: US)
  Receive Date: 20131104
  Receipt Date: 20131104
  Transmission Date: 20140711
  Serious: No
  Sender: FDA-Public Use
  Company Number: US-BIOGENIDEC-2013BI090432

PATIENT
  Age: 45 Year
  Sex: Female

DRUGS (13)
  1. TECFIDERA [Suspect]
     Indication: MULTIPLE SCLEROSIS
     Route: 048
  2. LEVOTHYROXINE [Concomitant]
  3. OMEPRAZOLE [Concomitant]
  4. VIT D3 [Concomitant]
  5. HYDROCODONE/ACET [Concomitant]
  6. ROPINIROLE HCL [Concomitant]
  7. QUETIAPINE FUMARATE [Concomitant]
  8. NORTRIPYTYLINE HCL [Concomitant]
  9. BACLOFEN [Concomitant]
  10. FENTANYL [Concomitant]
  11. ALPRAZOLAM [Concomitant]
  12. AMANTADINE [Concomitant]
  13. DIAMINOPHRIDINE [Concomitant]

REACTIONS (5)
  - Fatigue [Unknown]
  - Muscle spasms [Unknown]
  - Flatulence [Unknown]
  - Abdominal distension [Unknown]
  - Abdominal discomfort [Unknown]
